FAERS Safety Report 6985032-1 (Version None)
Quarter: 2010Q3

REPORT INFORMATION
  Report Type: 
  Country: None (occurrence: None)
  Receive Date: 20100915
  Receipt Date: 20100903
  Transmission Date: 20110219
  Serious: Yes (Hospitalization)
  Sender: FDA-Public Use
  Company Number: PHHY2010IT53245

PATIENT
  Age: 24 Year
  Sex: Male

DRUGS (2)
  1. LEPONEX [Suspect]
     Dosage: 100 MG, QID
  2. VALPROIC ACID [Concomitant]
     Dosage: 200 MG, BID

REACTIONS (21)
  - ASTHENIA [None]
  - BLOOD PRESSURE DECREASED [None]
  - BREATH SOUNDS ABNORMAL [None]
  - C-REACTIVE PROTEIN INCREASED [None]
  - CARDIAC FAILURE ACUTE [None]
  - CARDIAC FUNCTION TEST ABNORMAL [None]
  - CARDIOTOXICITY [None]
  - DILATATION VENTRICULAR [None]
  - DYSPNOEA [None]
  - EJECTION FRACTION DECREASED [None]
  - ELECTROCARDIOGRAM LOW VOLTAGE [None]
  - LEFT VENTRICULAR DYSFUNCTION [None]
  - LEUKOCYTOSIS [None]
  - MYOPERICARDITIS [None]
  - PALLOR [None]
  - PERICARDIAL DRAINAGE [None]
  - PERICARDIAL EFFUSION [None]
  - SINUS TACHYCARDIA [None]
  - TROPONIN I INCREASED [None]
  - VENTRICULAR DYSKINESIA [None]
  - VENTRICULAR HYPOKINESIA [None]
